FAERS Safety Report 19661726 (Version 1)
Quarter: 2021Q3

REPORT INFORMATION
  Report Type: Spontaneous
  Country: US (occurrence: US)
  Receive Date: 20210805
  Receipt Date: 20210805
  Transmission Date: 20211014
  Serious: Yes (Other)
  Sender: FDA-Public Use
  Company Number: US-ACCORD-186571

PATIENT
  Age: 48 Year
  Sex: Female

DRUGS (4)
  1. TAMOXIFEN [Concomitant]
     Active Substance: TAMOXIFEN
     Dates: start: 20151001
  2. DOCETAXEL ACCORD [Suspect]
     Active Substance: DOCETAXEL
     Indication: BREAST CANCER
     Dosage: NUMBER OF CYCLES: 06
     Dates: start: 20150410, end: 20150723
  3. PARAPLATIN [Suspect]
     Active Substance: CARBOPLATIN
     Indication: PRODUCT USED FOR UNKNOWN INDICATION
     Dosage: NUMBER OF CYCLES: 06
     Dates: start: 20150410, end: 20150723
  4. HERCEPTIN [Suspect]
     Active Substance: TRASTUZUMAB
     Indication: PRODUCT USED FOR UNKNOWN INDICATION
     Dosage: NUMBER OF CYCLES: 06
     Dates: start: 20150410, end: 20150723

REACTIONS (1)
  - Alopecia [Not Recovered/Not Resolved]

NARRATIVE: CASE EVENT DATE: 20150510
